FAERS Safety Report 4933288-9 (Version None)
Quarter: 2006Q1

REPORT INFORMATION
  Report Type: 
  Country: None (occurrence: None)
  Receive Date: 20060306
  Receipt Date: 20051107
  Transmission Date: 20060701
  Serious: Yes (Hospitalization)
  Sender: FDA-Public Use
  Company Number: US-MERCK-0511USA01114

PATIENT
  Age: 78 Year
  Sex: Female
  Weight: 72 kg

DRUGS (4)
  1. VIOXX [Suspect]
     Route: 048
  2. ZIAC [Concomitant]
     Route: 065
  3. DOXEPIN HYDROCHLORIDE [Concomitant]
     Route: 065
  4. RISPERDAL [Concomitant]
     Route: 065

REACTIONS (13)
  - ANAEMIA [None]
  - ARTHRITIS [None]
  - CORONARY ARTERY DISEASE [None]
  - HALLUCINATION, VISUAL [None]
  - MYOCARDIAL INFARCTION [None]
  - OSTEOPOROSIS [None]
  - PARKINSON'S DISEASE [None]
  - PEPTIC ULCER [None]
  - PSYCHOTIC DISORDER [None]
  - RENAL FAILURE [None]
  - URINARY TRACT INFECTION [None]
  - VASCULAR DEMENTIA [None]
  - WEIGHT DECREASED [None]
